FAERS Safety Report 5492256-1 (Version None)
Quarter: 2007Q4

REPORT INFORMATION
  Report Type: 
  Country: None (occurrence: None)
  Receive Date: 20071022
  Receipt Date: 20071009
  Transmission Date: 20080405
  Serious: Yes (Other)
  Sender: FDA-Public Use
  Company Number: JP-ASTRAZENECA-2007SE05579

PATIENT
  Age: 70 Year
  Sex: Female
  Weight: 39 kg

DRUGS (7)
  1. CANDESARTAN CILEXETIL [Suspect]
     Indication: HYPERTENSION
     Route: 048
  2. KETALAR [Suspect]
     Indication: ANALGESIC THERAPY
     Dosage: UNK (6 MG/HR)
     Route: 042
  3. AMLODIPINE [Concomitant]
     Indication: HYPERTENSION
     Route: 048
  4. DIURETICS [Concomitant]
     Indication: HYPERTENSION
     Route: 065
  5. MIDAZOLAM [Concomitant]
     Indication: ANAESTHESIA
     Route: 042
  6. FENTANYL [Concomitant]
     Indication: ANAESTHESIA
     Dosage: UNK (200 MCG FOR ANESTHESIA; 100-150 MCG FOR PAIN RELIEF, INTERMITTENT ADMINISTRATION)
     Route: 042
  7. PROPOFOL [Concomitant]
     Indication: ANAESTHESIA
     Dosage: UNK (60-160 MG/HR, CONTINUOUS ADMINISTRATION)
     Route: 042

REACTIONS (2)
  - SWELLING FACE [None]
  - SWOLLEN TONGUE [None]
